FAERS Safety Report 6018802-7 (Version None)
Quarter: 2008Q4

REPORT INFORMATION
  Report Type: 
  Country: None (occurrence: None)
  Receive Date: 20081222
  Receipt Date: 20081208
  Transmission Date: 20090506
  Serious: Yes (Hospitalization)
  Sender: FDA-Public Use
  Company Number: A-US2008-23026

PATIENT
  Age: 44 Year
  Sex: Male

DRUGS (1)
  1. TRACLEER [Suspect]
     Indication: DRUG USE FOR UNKNOWN INDICATION
     Dosage: MG, ORAL
     Route: 048

REACTIONS (1)
  - PANCREATITIS [None]
